FAERS Safety Report 21206688 (Version 7)
Quarter: 2022Q4

REPORT INFORMATION
  Report Type: Spontaneous
  Country: JP (occurrence: JP)
  Receive Date: 20220812
  Receipt Date: 20221010
  Transmission Date: 20230113
  Serious: Yes (Death, Life-Threatening, Other)
  Sender: FDA-Public Use
  Company Number: JP-ASTELLAS-2022JP011862

PATIENT
  Age: 7 Decade
  Sex: Male

DRUGS (4)
  1. PADCEV [Suspect]
     Active Substance: ENFORTUMAB VEDOTIN-EJFV
     Indication: Transitional cell carcinoma
     Route: 041
     Dates: start: 20220712, end: 20220726
  2. LANSOPRAZOLE [Suspect]
     Active Substance: LANSOPRAZOLE
     Indication: Product used for unknown indication
     Dosage: UNK UNK, UNKNOWN FREQ.
     Route: 065
  3. PREDONINE [Concomitant]
     Active Substance: PREDNISOLONE
     Indication: Erythema
     Dosage: UNK, UNKNOWN FREQ.
     Route: 065
     Dates: start: 202208
  4. PREDONINE [Concomitant]
     Active Substance: PREDNISOLONE
     Indication: Dermatitis bullous
     Route: 065
     Dates: start: 202208

REACTIONS (14)
  - Septic shock [Fatal]
  - Neutrophil count decreased [Unknown]
  - Blood pressure decreased [Unknown]
  - Pyrexia [Not Recovered/Not Resolved]
  - Toxic epidermal necrolysis [Fatal]
  - Myelosuppression [Recovered/Resolved]
  - Dermatitis bullous [Not Recovered/Not Resolved]
  - Hyperglycaemia [Not Recovered/Not Resolved]
  - Hyponatraemia [Unknown]
  - Hepatic function abnormal [Unknown]
  - Arthralgia [Not Recovered/Not Resolved]
  - Oral candidiasis [Unknown]
  - Erythema [Recovered/Resolved]
  - Decreased appetite [Not Recovered/Not Resolved]

NARRATIVE: CASE EVENT DATE: 20220801
